FAERS Safety Report 9319081 (Version 2)
Quarter: 2013Q2

REPORT INFORMATION
  Report Type: Spontaneous
  Country: US (occurrence: None)
  Receive Date: 20130523
  Receipt Date: 20130610
  Transmission Date: 20140414
  Serious: Yes (Life-Threatening, Hospitalization, Other)
  Sender: FDA-Public Use
  Company Number: ADR-2013-00865

PATIENT
  Age: 23 Month
  Sex: Female

DRUGS (1)
  1. BACLOFEN [Suspect]

REACTIONS (6)
  - Toxicity to various agents [None]
  - Fall [None]
  - Head injury [None]
  - Hypotonia [None]
  - Unresponsive to stimuli [None]
  - Brain death [None]
